FAERS Safety Report 5220594-6 (Version None)
Quarter: 2007Q1

REPORT INFORMATION
  Report Type: 
  Country: None (occurrence: None)
  Receive Date: 20070125
  Receipt Date: 20070125
  Transmission Date: 20070707
  Serious: Yes (Hospitalization)
  Sender: FDA-Public Use
  Company Number: None

PATIENT
  Sex: Male
  Weight: 82.1011 kg

DRUGS (12)
  1. TRILEPTAL [Suspect]
     Indication: CONVULSION
     Dosage: 300MG PO BID PRIOR TO ADMISSION
     Route: 048
  2. LAMICTAL [Suspect]
     Indication: CONVULSION
     Dosage: 50 MG PO BID PRIOR TO ADMISSION
     Route: 048
  3. KEPPRA [Concomitant]
  4. HALDOL [Concomitant]
  5. COLACE [Concomitant]
  6. LORATADINE [Concomitant]
  7. M.V.I. [Concomitant]
  8. NORVASC [Concomitant]
  9. ASPIRIN [Concomitant]
  10. HYDROXYZINE [Concomitant]
  11. TYLENOL [Concomitant]
  12. OMEPRAZOLE [Concomitant]

REACTIONS (5)
  - CONFUSIONAL STATE [None]
  - DRUG TOXICITY [None]
  - GAIT DISTURBANCE [None]
  - MENTAL STATUS CHANGES [None]
  - OEDEMA [None]
